FAERS Safety Report 5092778-1 (Version None)
Quarter: 2006Q3

REPORT INFORMATION
  Report Type: 
  Country: None (occurrence: None)
  Receive Date: 20060830
  Receipt Date: 20060824
  Transmission Date: 20061208
  Serious: Yes (Other)
  Sender: FDA-Public Use
  Company Number: 2006PK01781

PATIENT
  Age: 51 Year
  Sex: Male

DRUGS (11)
  1. BELOC ZOK [Suspect]
     Indication: ACUTE MYOCARDIAL INFARCTION
     Route: 048
     Dates: start: 20050701
  2. ZESTRIL [Suspect]
     Indication: ACUTE MYOCARDIAL INFARCTION
     Route: 048
     Dates: start: 20050701
  3. SELIPRAN [Suspect]
     Indication: ACUTE MYOCARDIAL INFARCTION
     Route: 048
     Dates: start: 20050701
  4. ASPIRIN [Concomitant]
     Indication: ACUTE MYOCARDIAL INFARCTION
     Route: 048
     Dates: start: 20050701
  5. TEMESTA [Concomitant]
     Indication: ANXIETY DISORDER
     Route: 048
  6. EFFEXOR [Concomitant]
     Indication: DEPRESSION
     Route: 048
  7. TRITTICO [Concomitant]
     Indication: DEPRESSION
     Route: 048
  8. METHADONE HCL [Concomitant]
     Indication: ABNORMAL BEHAVIOUR
     Route: 048
     Dates: start: 20040601
  9. TRIZIVIR [Concomitant]
     Indication: HIV INFECTION
     Route: 048
     Dates: start: 20020101
  10. VITARUBIN [Concomitant]
     Indication: ANAEMIA VITAMIN B12 DEFICIENCY
  11. FOLVITE [Concomitant]
     Indication: ANAEMIA VITAMIN B12 DEFICIENCY

REACTIONS (1)
  - LIVER DISORDER [None]
